FAERS Safety Report 23371598 (Version 1)
Quarter: 2024Q1

REPORT INFORMATION
  Report Type: Spontaneous
  Country: US (occurrence: US)
  Receive Date: 20240105
  Receipt Date: 20240105
  Transmission Date: 20240410
  Serious: No
  Sender: FDA-Public Use
  Company Number: US-Calliditas-2023CAL01732

PATIENT
  Age: 43 Year
  Sex: Female
  Weight: 89 kg

DRUGS (1)
  1. TARPEYO [Suspect]
     Active Substance: BUDESONIDE
     Indication: IgA nephropathy
     Route: 048
     Dates: start: 20231106

REACTIONS (3)
  - Abdominal pain [Unknown]
  - Abdominal discomfort [Unknown]
  - Inappropriate schedule of product administration [Recovered/Resolved]
